FAERS Safety Report 9597382 (Version 1)
Quarter: 2013Q4

REPORT INFORMATION
  Report Type: Spontaneous
  Country: US (occurrence: US)
  Receive Date: 20131004
  Receipt Date: 20131004
  Transmission Date: 20140711
  Serious: No
  Sender: FDA-Public Use
  Company Number: US-AMGEN-USASP2013018835

PATIENT
  Age: 25 Year
  Sex: Male
  Weight: 86.17 kg

DRUGS (5)
  1. ENBREL [Suspect]
     Indication: PSORIASIS
     Dosage: 50 MG, QWK
     Route: 058
  2. ADVIL                              /00044201/ [Concomitant]
     Dosage: 200 MG, UNK
  3. TACLONEX [Concomitant]
     Dosage: UNK
  4. TAZORAC [Concomitant]
     Dosage: 0.1 %, UNK
  5. CLOBEX                             /00337102/ [Concomitant]
     Dosage: UNK

REACTIONS (1)
  - Cough [Unknown]
